FAERS Safety Report 12185271 (Version 1)
Quarter: 2016Q1

REPORT INFORMATION
  Report Type: Spontaneous
  Country: LB (occurrence: LB)
  Receive Date: 20160316
  Receipt Date: 20160316
  Transmission Date: 20160526
  Serious: Yes (Life-Threatening)
  Sender: FDA-Public Use
  Company Number: PHHY2016LB035049

PATIENT
  Age: 22 Year
  Sex: Female

DRUGS (2)
  1. ZARZIO [Suspect]
     Active Substance: FILGRASTIM
     Dosage: UNK
     Route: 042
     Dates: start: 20160301
  2. ZARZIO [Suspect]
     Active Substance: FILGRASTIM
     Indication: APLASIA
     Dosage: UNK
     Route: 065
     Dates: start: 20160229

REACTIONS (5)
  - Intestinal angioedema [Recovered/Resolved]
  - Chest discomfort [Recovered/Resolved]
  - Discomfort [Recovered/Resolved]
  - Hypotension [Recovered/Resolved]
  - Dyspnoea [Recovered/Resolved]

NARRATIVE: CASE EVENT DATE: 20160301
